FAERS Safety Report 21455886 (Version 4)
Quarter: 2022Q4

REPORT INFORMATION
  Report Type: Report from Study
  Country: JP (occurrence: JP)
  Receive Date: 20221014
  Receipt Date: 20221213
  Transmission Date: 20230112
  Serious: Yes (Other)
  Sender: FDA-Public Use
  Company Number: JP-CELLTRION INC.-2021JP015128

PATIENT

DRUGS (26)
  1. INVESTIGATIONAL BIOSIMILARS [Suspect]
     Active Substance: INVESTIGATIONAL BIOSIMILARS
     Indication: HER2 positive gastric cancer
     Dosage: 435 MG, QD
     Route: 041
     Dates: start: 20210601, end: 20210601
  2. INVESTIGATIONAL BIOSIMILARS [Suspect]
     Active Substance: INVESTIGATIONAL BIOSIMILARS
     Dosage: 435 MG, QD
     Route: 041
     Dates: start: 20210705, end: 20210705
  3. INVESTIGATIONAL BIOSIMILARS [Suspect]
     Active Substance: INVESTIGATIONAL BIOSIMILARS
     Dosage: 310 MG, QD
     Route: 041
     Dates: start: 20210906, end: 20210906
  4. INVESTIGATIONAL BIOSIMILARS [Suspect]
     Active Substance: INVESTIGATIONAL BIOSIMILARS
     Dosage: 310 MG, QD
     Route: 041
     Dates: start: 20210927, end: 20210927
  5. INVESTIGATIONAL BIOSIMILARS [Suspect]
     Active Substance: INVESTIGATIONAL BIOSIMILARS
     Dosage: 310 MG, QD
     Route: 041
     Dates: start: 20211018, end: 20211018
  6. INVESTIGATIONAL BIOSIMILARS [Suspect]
     Active Substance: INVESTIGATIONAL BIOSIMILARS
     Dosage: 310 MG, QD
     Route: 041
     Dates: start: 20211108, end: 20211108
  7. INVESTIGATIONAL BIOSIMILARS [Suspect]
     Active Substance: INVESTIGATIONAL BIOSIMILARS
     Dosage: 310 MG, QD
     Route: 041
     Dates: start: 20211129, end: 20211129
  8. INVESTIGATIONAL BIOSIMILARS [Suspect]
     Active Substance: INVESTIGATIONAL BIOSIMILARS
     Dosage: 310 MG, QD
     Route: 041
     Dates: start: 20211220, end: 20211220
  9. OXALIPLATIN [Suspect]
     Active Substance: OXALIPLATIN
     Indication: HER2 positive gastric cancer
     Dosage: 200 MG, QD
     Route: 041
     Dates: start: 20210601, end: 20210601
  10. OXALIPLATIN [Suspect]
     Active Substance: OXALIPLATIN
     Dosage: 160 MG, QD
     Route: 041
     Dates: start: 20210705, end: 20210705
  11. OXALIPLATIN [Suspect]
     Active Substance: OXALIPLATIN
     Dosage: 160 MG, QD
     Route: 041
     Dates: start: 20210906, end: 20210906
  12. OXALIPLATIN [Suspect]
     Active Substance: OXALIPLATIN
     Dosage: 160 MG, QD
     Route: 041
     Dates: start: 20210927, end: 20210927
  13. XELODA [Suspect]
     Active Substance: CAPECITABINE
     Indication: HER2 positive gastric cancer
     Dosage: 3000 MG, QD
     Route: 048
     Dates: start: 20210601, end: 20210621
  14. XELODA [Suspect]
     Active Substance: CAPECITABINE
     Dosage: 2400 MG, QD
     Route: 048
     Dates: start: 20210705, end: 20210725
  15. XELODA [Suspect]
     Active Substance: CAPECITABINE
     Dosage: 2400 MG, QD
     Route: 048
     Dates: start: 20210906, end: 20210920
  16. XELODA [Suspect]
     Active Substance: CAPECITABINE
     Dosage: 2400 MG, QD
     Route: 048
     Dates: start: 20210927, end: 20211011
  17. XELODA [Suspect]
     Active Substance: CAPECITABINE
     Dosage: 2400 MG, QD
     Route: 048
     Dates: start: 20211018, end: 20211101
  18. ALOXI [Concomitant]
     Active Substance: PALONOSETRON HYDROCHLORIDE
     Indication: Prophylaxis of nausea and vomiting
     Dosage: UNK
     Dates: start: 20210601, end: 20210927
  19. DEXAMETHASONE SODIUM PHOSPHATE [Concomitant]
     Active Substance: DEXAMETHASONE SODIUM PHOSPHATE
     Indication: Prophylaxis of nausea and vomiting
     Dosage: UNK
     Dates: start: 20210601, end: 20211018
  20. FOSAPREPITANT [Concomitant]
     Active Substance: FOSAPREPITANT
     Indication: Prophylaxis of nausea and vomiting
     Dosage: UNK
     Dates: start: 20210601, end: 20210601
  21. LANSOPRAZOLE [Concomitant]
     Active Substance: LANSOPRAZOLE
     Indication: Haemorrhage prophylaxis
     Dosage: UNK
     Dates: start: 20210528
  22. LANSOPRAZOLE [Concomitant]
     Active Substance: LANSOPRAZOLE
     Indication: HER2 positive gastric cancer
     Dosage: UNK
  23. EDOXABAN TOSYLATE [Concomitant]
     Active Substance: EDOXABAN TOSYLATE
     Indication: Thrombosis prophylaxis
     Dosage: UNK
     Dates: start: 20210611
  24. MIYA-BM [Concomitant]
     Active Substance: CLOSTRIDIUM BUTYRICUM SPORES STRAIN M-55
     Indication: Prophylaxis against diarrhoea
     Dosage: 3 DOSAGE FORM, QD
     Dates: start: 20210617
  25. APREPITANT [Concomitant]
     Active Substance: APREPITANT
     Indication: Prophylaxis of nausea and vomiting
     Dosage: UNK
     Dates: start: 20210906, end: 20210929
  26. DECADRON [Concomitant]
     Active Substance: DEXAMETHASONE
     Indication: Prophylaxis of nausea and vomiting
     Dosage: UNK
     Dates: start: 20210906, end: 20210929

REACTIONS (7)
  - Neuropathy peripheral [Recovered/Resolved]
  - White blood cell count decreased [Recovered/Resolved]
  - Diarrhoea [Recovered/Resolved]
  - Diarrhoea [Recovered/Resolved]
  - Palmar-plantar erythrodysaesthesia syndrome [Recovering/Resolving]
  - Overdose [Unknown]
  - Off label use [Unknown]

NARRATIVE: CASE EVENT DATE: 20210617
